FAERS Safety Report 23069488 (Version 1)
Quarter: 2023Q4

REPORT INFORMATION
  Report Type: Spontaneous
  Country: CN (occurrence: CN)
  Receive Date: 20231016
  Receipt Date: 20231016
  Transmission Date: 20240110
  Serious: Yes (Hospitalization)
  Sender: FDA-Public Use
  Company Number: CN-BAYER-2023A145063

PATIENT
  Age: 60 Year
  Sex: Male
  Weight: 40 kg

DRUGS (6)
  1. AVELOX [Suspect]
     Active Substance: MOXIFLOXACIN HYDROCHLORIDE
     Indication: Pneumonia
     Dosage: 0.4 G, QD
     Route: 048
     Dates: start: 20230830, end: 20230905
  2. VANCOMYCIN [Suspect]
     Active Substance: VANCOMYCIN
     Indication: Pneumonia
     Dosage: UNK
     Dates: start: 202308
  3. PIPERACILLIN AND TAZOBACTAM [Suspect]
     Active Substance: PIPERACILLIN SODIUM\TAZOBACTAM SODIUM
     Indication: Pneumonia
     Dosage: UNK
     Dates: start: 202308
  4. CELECOXIB [Suspect]
     Active Substance: CELECOXIB
     Indication: Analgesic therapy
     Dosage: 0.2 G, BID
     Route: 048
     Dates: start: 20230906, end: 20230911
  5. FEBUXOSTAT [Suspect]
     Active Substance: FEBUXOSTAT
     Indication: Blood uric acid increased
     Dosage: 40 MG, QD
     Route: 048
     Dates: start: 20230906, end: 20230911
  6. CEFUROXIME SODIUM [Concomitant]
     Active Substance: CEFUROXIME SODIUM
     Indication: Pneumonia
     Dosage: 1.5 G, QD
     Route: 041
     Dates: start: 20230830, end: 20230914

REACTIONS (2)
  - Platelet count decreased [Recovering/Resolving]
  - Blood uric acid increased [None]

NARRATIVE: CASE EVENT DATE: 20230904
